FAERS Safety Report 6355809-4 (Version None)
Quarter: 2009Q3

REPORT INFORMATION
  Report Type: 
  Country: None (occurrence: None)
  Receive Date: 20090911
  Receipt Date: 20090911
  Transmission Date: 20100115
  Serious: Yes (Disabling, Other)
  Sender: FDA-Public Use
  Company Number: None

PATIENT
  Age: 60 Year
  Sex: Female
  Weight: 95.2554 kg

DRUGS (2)
  1. ZICAM SINUS RELIEF NASAL GEL NASAL GEL ZICAM [Suspect]
     Indication: SINUS DISORDER
     Dosage: NASAL GEL 2X DAILY NASAL SPRAY
     Route: 045
     Dates: start: 20090328, end: 20090403
  2. ZICAM COLD + FLU MEDICATED SPOON ZICAM [Suspect]
     Dosage: 3/28/09 1 TIME ORAL
     Route: 048

REACTIONS (2)
  - AGEUSIA [None]
  - ANOSMIA [None]
